FAERS Safety Report 7692159-8 (Version None)
Quarter: 2011Q3

REPORT INFORMATION
  Report Type: 
  Country: None (occurrence: None)
  Receive Date: 20110818
  Receipt Date: 20110809
  Transmission Date: 20111222
  Serious: Yes (Hospitalization)
  Sender: FDA-Public Use
  Company Number: PHHY2011JP51807

PATIENT
  Age: 6 Year
  Sex: Male
  Weight: 19 kg

DRUGS (17)
  1. NEORAL [Suspect]
     Indication: EPILEPSY
     Dosage: 0.5 ML, BID
     Route: 048
     Dates: start: 20110601, end: 20110604
  2. PREDNISOLONE [Concomitant]
     Dosage: 15 MG, DAILY
     Route: 048
     Dates: start: 20100831
  3. RISPERDAL [Concomitant]
     Dosage: UNK UKN, UNK
     Route: 048
     Dates: start: 20110609
  4. RISPERDAL [Concomitant]
     Dosage: 0.5 MG, UNK
     Dates: start: 20110611
  5. PREDNISOLONE [Concomitant]
     Dosage: 6 MG, UNK
     Route: 048
  6. CATAPRES [Concomitant]
     Dosage: UNK UKN, UNK
  7. LAMICTAL [Concomitant]
     Dosage: 2 DF, IN TWO DIVIDED DOSES
     Route: 048
  8. NEORAL [Suspect]
     Dosage: 100 MG, UNK
     Route: 048
     Dates: start: 20110603, end: 20110613
  9. RISPERDAL [Concomitant]
     Dosage: 0.25 MG, UNK
     Dates: start: 20110610
  10. NITRAZEPAM [Concomitant]
     Dosage: 7 MG, UNK
     Route: 048
  11. VALPROIC ACID [Concomitant]
     Dosage: 200 MG, DAILY IN TWO DIVIDED DOSES
     Route: 048
  12. RISPERDAL [Concomitant]
     Dosage: 0.25 MG, UNK
  13. NEORAL [Suspect]
     Dosage: 1 ML, QD
     Route: 048
     Dates: start: 20110605, end: 20110613
  14. NEORAL [Suspect]
     Dosage: 1.2 ML, QD
     Route: 048
     Dates: start: 20110614
  15. NEORAL [Suspect]
     Dosage: 50 MG, UNK
     Route: 048
     Dates: start: 20110531, end: 20110602
  16. NITRAZEPAM [Concomitant]
     Dosage: 4 MG, QD
     Route: 048
  17. MAGNESIUM OXIDE [Concomitant]

REACTIONS (14)
  - TREMOR [None]
  - HALLUCINATION [None]
  - HALLUCINATION, AUDITORY [None]
  - NASOPHARYNGITIS [None]
  - HYPERKINESIA [None]
  - CONFUSIONAL STATE [None]
  - AGGRESSION [None]
  - PYREXIA [None]
  - AGITATION [None]
  - IRRITABILITY [None]
  - SCREAMING [None]
  - RESTLESSNESS [None]
  - DECREASED APPETITE [None]
  - DYSPHONIA [None]
